FAERS Safety Report 5109836-5 (Version None)
Quarter: 2006Q3

REPORT INFORMATION
  Report Type: 
  Country: None (occurrence: None)
  Receive Date: 20060918
  Receipt Date: 20060918
  Transmission Date: 20061208
  Serious: Yes (Other)
  Sender: FDA-Public Use
  Company Number: None

PATIENT
  Sex: Female
  Weight: 95.2554 kg

DRUGS (1)
  1. MEDROXYPROGESTERONE [Suspect]
     Indication: CONTRACEPTION
     Dosage: 150MG   1 TIME    IM
     Route: 030
     Dates: start: 20060831, end: 20060831

REACTIONS (7)
  - ARTHRALGIA [None]
  - BACK PAIN [None]
  - DEPRESSION [None]
  - LOSS OF EMPLOYMENT [None]
  - MOOD SWINGS [None]
  - MYALGIA [None]
  - NECK PAIN [None]
